FAERS Safety Report 10243478 (Version 1)
Quarter: 2014Q2

REPORT INFORMATION
  Report Type: Spontaneous
  Country: US (occurrence: None)
  Receive Date: 20140616
  Receipt Date: 20140616
  Transmission Date: 20141212
  Serious: Yes (Hospitalization)
  Sender: FDA-Public Use
  Company Number: None

PATIENT
  Age: 56 Year
  Sex: Female
  Weight: 61.9 kg

DRUGS (3)
  1. METHOTREXATE [Suspect]
  2. PROCARBAZINE [Suspect]
  3. RITUXIMAB (MOAB C2B8 ANTI CD20, CHIMERIC) [Suspect]

REACTIONS (8)
  - Pyrexia [None]
  - Rales [None]
  - Cough [None]
  - Malaise [None]
  - Presyncope [None]
  - Toxicity to various agents [None]
  - Infection [None]
  - Dehydration [None]
